FAERS Safety Report 17327391 (Version 2)
Quarter: 2020Q2

REPORT INFORMATION
  Report Type: Spontaneous
  Country: US (occurrence: US)
  Receive Date: 20200127
  Receipt Date: 20200528
  Transmission Date: 20200713
  Serious: Yes (Death, Hospitalization)
  Sender: FDA-Public Use
  Company Number: US-PFIZER INC-2020037847

PATIENT
  Age: 63 Year
  Sex: Male
  Weight: 72.56 kg

DRUGS (5)
  1. SENNA-S [DOCUSATE SODIUM;SENNA ALEXANDRINA] [Concomitant]
     Dosage: UNK
     Dates: end: 20191202
  2. SPIRIVA [Concomitant]
     Active Substance: TIOTROPIUM BROMIDE MONOHYDRATE
     Dosage: UNK
     Dates: end: 20191202
  3. FAMOTIDINE. [Concomitant]
     Active Substance: FAMOTIDINE
     Dosage: UNK
     Dates: end: 20191202
  4. FLOVENT [Concomitant]
     Active Substance: FLUTICASONE PROPIONATE
     Dosage: UNK
     Dates: end: 20191202
  5. XALKORI [Suspect]
     Active Substance: CRIZOTINIB
     Indication: LUNG CANCER METASTATIC
     Dosage: 20 MG, DAILY

REACTIONS (4)
  - Neoplasm progression [Fatal]
  - Dyspnoea [Unknown]
  - Pulmonary embolism [Fatal]
  - Chest pain [Unknown]

NARRATIVE: CASE EVENT DATE: 20191202
